FAERS Safety Report 8814366 (Version 1)
Quarter: 2012Q4

REPORT INFORMATION
  Report Type: Spontaneous
  Country: US (occurrence: None)
  Receive Date: 20120925
  Receipt Date: 20120925
  Transmission Date: 20130627
  Serious: Yes (Hospitalization, Other)
  Sender: FDA-Public Use
  Company Number: 2012P1057335

PATIENT
  Age: 26 Year
  Sex: Female
  Weight: 46.27 kg

DRUGS (9)
  1. CARBAMAZEPINE [Suspect]
     Indication: SEIZURES
     Dates: start: 201208, end: 20120910
  2. CARBAMAZEPINE [Suspect]
     Indication: SEIZURES
     Dates: start: 082012, end: 20120906
  3. CARBAMAZEPINE [Suspect]
     Indication: SEIZURES
     Dates: start: 20120907, end: 20120910
  4. CARBAMAZEPINE [Suspect]
     Indication: SEIZURES
     Dates: start: 20120912
  5. CARBAMAZEPINE [Suspect]
     Indication: SEIZURES
     Dates: start: 20120912
  6. PHENOBARBITAL [Concomitant]
  7. ALBUTEROL NEBULIZER [Concomitant]
  8. BUSODEMIDE [Concomitant]
  9. SINGULAIR [Concomitant]

REACTIONS (6)
  - Urinary tract infection [None]
  - Pyrexia [None]
  - Anticonvulsant drug level decreased [None]
  - Pallor [None]
  - Lethargy [None]
  - Constipation [None]
